FAERS Safety Report 4948330-9 (Version None)
Quarter: 2006Q1

REPORT INFORMATION
  Report Type: 
  Country: None (occurrence: None)
  Receive Date: 20060320
  Receipt Date: 20060220
  Transmission Date: 20060701
  Serious: Yes (Hospitalization)
  Sender: FDA-Public Use
  Company Number: FR-ROCHE-437414

PATIENT
  Age: 76 Year
  Sex: Female
  Weight: 75 kg

DRUGS (7)
  1. INVIRASE [Suspect]
     Route: 048
     Dates: start: 20060207, end: 20060213
  2. FUZEON [Suspect]
     Route: 058
     Dates: start: 20060207, end: 20060213
  3. NORVIR [Suspect]
     Route: 048
     Dates: start: 20060207, end: 20060213
  4. KALETRA [Suspect]
     Route: 048
     Dates: start: 20060207, end: 20060213
  5. UNSPECIFIED DRUG [Suspect]
     Indication: DRUG USE FOR UNKNOWN INDICATION
     Dosage: DRUG REPORTED AS TEMERIT
     Route: 048
     Dates: end: 20060212
  6. RIVOTRIL [Concomitant]
     Indication: DRUG USE FOR UNKNOWN INDICATION
     Route: 065
  7. LAROXYL [Concomitant]
     Indication: DRUG USE FOR UNKNOWN INDICATION
     Route: 048

REACTIONS (1)
  - RENAL FAILURE ACUTE [None]
